FAERS Safety Report 4903526-7 (Version None)
Quarter: 2006Q1

REPORT INFORMATION
  Report Type: 
  Country: None (occurrence: None)
  Receive Date: 20060208
  Receipt Date: 20060202
  Transmission Date: 20060701
  Serious: Yes (Hospitalization)
  Sender: FDA-Public Use
  Company Number: US-ABBOTT-06P-163-0323922-00

PATIENT
  Sex: Male
  Weight: 10.442 kg

DRUGS (3)
  1. OMNICEF [Suspect]
     Indication: OTITIS MEDIA
     Route: 048
     Dates: start: 20060129, end: 20060130
  2. OMNICEF [Suspect]
     Indication: PYREXIA
  3. SALBUTAMOL [Concomitant]
     Indication: BRONCHIOLITIS
     Route: 055

REACTIONS (1)
  - CONVULSION [None]
